FAERS Safety Report 22202753 (Version 1)
Quarter: 2023Q2

REPORT INFORMATION
  Report Type: Spontaneous
  Country: ES (occurrence: ES)
  Receive Date: 20230412
  Receipt Date: 20230412
  Transmission Date: 20230721
  Serious: Yes (Hospitalization)
  Sender: FDA-Public Use
  Company Number: None

PATIENT
  Age: 62 Year
  Sex: Female

DRUGS (2)
  1. PACLITAXEL [Interacting]
     Active Substance: PACLITAXEL
     Indication: Ovarian cancer
     Dosage: 133.6 MILIGRAMS (80MG/M2)
     Route: 042
     Dates: start: 20221028
  2. CARBOPLATIN [Interacting]
     Active Substance: CARBOPLATIN
     Indication: Ovarian cancer
     Dosage: 201.153 MILIGRAMS (2MG/AUC)
     Route: 042
     Dates: start: 20221128

REACTIONS (2)
  - Anaemia [Recovered/Resolved]
  - Drug interaction [Unknown]

NARRATIVE: CASE EVENT DATE: 20221129
